FAERS Safety Report 4697078-7 (Version None)
Quarter: 2005Q2

REPORT INFORMATION
  Report Type: 
  Country: None (occurrence: None)
  Receive Date: 20050622
  Receipt Date: 20030226
  Transmission Date: 20051028
  Serious: Yes (Other)
  Sender: FDA-Public Use
  Company Number: FR-ROCHE-332591

PATIENT
  Age: 52 Year
  Sex: Male
  Weight: 80 kg

DRUGS (4)
  1. PEG-INTERFERON ALFA 2A (RO 25-8310) [Suspect]
     Route: 058
     Dates: start: 20020717, end: 20030112
  2. RIBAVIRIN [Suspect]
     Route: 048
     Dates: start: 20020717, end: 20030112
  3. PROGRAF [Concomitant]
  4. ICAZ [Concomitant]

REACTIONS (3)
  - ASTHENIA [None]
  - LIVER FUNCTION TEST ABNORMAL [None]
  - TRANSPLANT REJECTION [None]
